FAERS Safety Report 5920576-2 (Version None)
Quarter: 2008Q4

REPORT INFORMATION
  Report Type: 
  Country: None (occurrence: None)
  Receive Date: 20081015
  Receipt Date: 20081015
  Transmission Date: 20090506
  Serious: Yes (Hospitalization)
  Sender: FDA-Public Use
  Company Number: None

PATIENT
  Age: 53 Year
  Sex: Male
  Weight: 68.7 kg

DRUGS (1)
  1. METHADONE HCL [Suspect]
     Indication: PAIN
     Dosage: 10 MG BID PO
     Route: 048
     Dates: start: 20040511, end: 20081008

REACTIONS (4)
  - ACCIDENTAL OVERDOSE [None]
  - FALL [None]
  - SKIN LACERATION [None]
  - UNRESPONSIVE TO STIMULI [None]
